FAERS Safety Report 22250147 (Version 3)
Quarter: 2023Q2

REPORT INFORMATION
  Report Type: Spontaneous
  Country: US (occurrence: US)
  Receive Date: 20230425
  Receipt Date: 20230602
  Transmission Date: 20230722
  Serious: No
  Sender: FDA-Public Use
  Company Number: US-PFIZER INC-PV202300063759

PATIENT
  Age: 81 Year
  Sex: Male

DRUGS (1)
  1. RETACRIT [Suspect]
     Active Substance: EPOETIN ALFA-EPBX
     Dosage: 6000 IU (EVERY 2 WEEKS - QUANTITY: 4)

REACTIONS (3)
  - Hypoacusis [Unknown]
  - Confusional state [Unknown]
  - Off label use [Unknown]
